FAERS Safety Report 8302909-5 (Version None)
Quarter: 2012Q2

REPORT INFORMATION
  Report Type: 
  Country: None (occurrence: None)
  Receive Date: 20120420
  Receipt Date: 20120419
  Transmission Date: 20120825
  Serious: Yes (Hospitalization)
  Sender: FDA-Public Use
  Company Number: GB-ROCHE-1061053

PATIENT
  Sex: Male
  Weight: 200 kg

DRUGS (3)
  1. STEROIDS NOS [Concomitant]
  2. MABTHERA [Suspect]
     Indication: RHEUMATOID ARTHRITIS
     Dosage: LAST DOSE PRIOR TO SAE: 13/OCT/2011
     Route: 065
     Dates: start: 20080521
  3. LEFLUNOMIDE [Concomitant]

REACTIONS (1)
  - CALCULUS URETERIC [None]
